FAERS Safety Report 4974502-3 (Version None)
Quarter: 2006Q1

REPORT INFORMATION
  Report Type: 
  Country: None (occurrence: None)
  Receive Date: 20060227
  Receipt Date: 20060104
  Transmission Date: 20060701
  Serious: No
  Sender: FDA-Public Use
  Company Number: PHEH2006US00553

PATIENT
  Sex: Female

DRUGS (3)
  1. ENABLEX [Suspect]
     Dosage: UNK, UNK, UNK;  7.5 MG, QD
     Dates: start: 20040601
  2. ENABLEX [Suspect]
     Dosage: UNK, UNK, UNK;  7.5 MG, QD
     Dates: start: 20050101
  3. ORAL CONTRACEPTIVE NOS (ORAL CONTRACEPTIVE NOS) [Concomitant]

REACTIONS (1)
  - HEADACHE [None]
